FAERS Safety Report 4475519-8 (Version None)
Quarter: 2004Q4

REPORT INFORMATION
  Report Type: 
  Country: None (occurrence: None)
  Receive Date: 20041015
  Receipt Date: 20041011
  Transmission Date: 20050328
  Serious: Yes (Death)
  Sender: FDA-Public Use
  Company Number: GB-MERCK-0410GBR00109

PATIENT
  Age: 76 Year
  Sex: Female

DRUGS (2)
  1. CELECOXIB [Suspect]
     Route: 065
     Dates: end: 20041008
  2. VIOXX [Suspect]
     Route: 048
     Dates: end: 20041004

REACTIONS (1)
  - MYOCARDIAL INFARCTION [None]
